FAERS Safety Report 11332914 (Version 1)
Quarter: 2015Q3

REPORT INFORMATION
  Report Type: Spontaneous
  Country: US (occurrence: US)
  Receive Date: 20150803
  Receipt Date: 20150803
  Transmission Date: 20151125
  Serious: No
  Sender: FDA-Public Use
  Company Number: US-ELI_LILLY_AND_COMPANY-US200603000417

PATIENT
  Age: 53 Year
  Sex: Female
  Weight: 102.04 kg

DRUGS (11)
  1. ZYPREXA [Suspect]
     Active Substance: OLANZAPINE
     Dosage: 5 MG, UNK
     Dates: start: 19990115, end: 200005
  2. TRAZODONE [Concomitant]
     Active Substance: TRAZODONE HYDROCHLORIDE
     Dates: start: 199808, end: 200007
  3. PREDNISONE. [Concomitant]
     Active Substance: PREDNISONE
     Dates: start: 199907
  4. PREDNISONE. [Concomitant]
     Active Substance: PREDNISONE
     Dates: start: 200010
  5. ZYPREXA [Suspect]
     Active Substance: OLANZAPINE
     Dosage: 10 MG, UNK
     Dates: start: 19980702, end: 199901
  6. SERTRALINE [Concomitant]
     Active Substance: SERTRALINE HYDROCHLORIDE
     Dates: start: 199907, end: 199909
  7. MIRTAZAPINE. [Concomitant]
     Active Substance: MIRTAZAPINE
     Dates: start: 200005, end: 200206
  8. ZYPREXA [Suspect]
     Active Substance: OLANZAPINE
     Dosage: 2.5 MG, UNK
     Dates: start: 200005, end: 200102
  9. FLUOXETINE                              /N/A/ [Concomitant]
     Dates: start: 1993, end: 1999
  10. FUROSEMIDE. [Concomitant]
     Active Substance: FUROSEMIDE
     Dates: start: 200004
  11. VENLAFAXINE [Concomitant]
     Active Substance: VENLAFAXINE HYDROCHLORIDE
     Dates: start: 199910, end: 200201

REACTIONS (10)
  - Hypoglycaemia [Unknown]
  - Weight increased [Unknown]
  - Hyperglycaemia [Unknown]
  - Ketonuria [Unknown]
  - Obesity [Unknown]
  - Diabetes mellitus [Unknown]
  - Polyuria [Unknown]
  - Hypertension [Unknown]
  - Hyperlipidaemia [Unknown]
  - Glycosuria [Unknown]

NARRATIVE: CASE EVENT DATE: 199910
